FAERS Safety Report 6133876-0 (Version None)
Quarter: 2009Q1

REPORT INFORMATION
  Report Type: 
  Country: None (occurrence: None)
  Receive Date: 20090326
  Receipt Date: 20090318
  Transmission Date: 20090719
  Serious: Yes (Hospitalization, Other)
  Sender: FDA-Public Use
  Company Number: PHHY2009BR10366

PATIENT
  Age: 49 Year
  Sex: Male
  Weight: 81 kg

DRUGS (3)
  1. TEGRETOL [Suspect]
     Indication: EPILEPSY
     Dosage: 200 MG, TID
     Dates: start: 19870101
  2. GARDENAL [Concomitant]
     Dosage: 1 TABLET EVERY 12 HOURS
     Route: 048
  3. ALCOHOL [Concomitant]
     Dosage: UNK

REACTIONS (2)
  - EAR HAEMORRHAGE [None]
  - FALL [None]
